FAERS Safety Report 21977594 (Version 1)
Quarter: 2023Q1

REPORT INFORMATION
  Report Type: Spontaneous
  Country: US (occurrence: None)
  Receive Date: 20230208
  Receipt Date: 20230208
  Transmission Date: 20230418
  Serious: No
  Sender: FDA-Public Use
  Company Number: None

PATIENT
  Sex: Female

DRUGS (1)
  1. DIMETHYL FUMARATE [Suspect]
     Active Substance: DIMETHYL FUMARATE
     Dosage: 240 MG BID ORAL?
     Route: 048

REACTIONS (5)
  - Pyrexia [None]
  - Spinal disorder [None]
  - Neoplasm [None]
  - Loss of consciousness [None]
  - Drug hypersensitivity [None]
